FAERS Safety Report 22188565 (Version 1)
Quarter: 2023Q2

REPORT INFORMATION
  Report Type: Other
  Country: US (occurrence: US)
  Receive Date: 20230409
  Receipt Date: 20230409
  Transmission Date: 20230722
  Serious: Yes (Death)
  Sender: FDA-Public Use
  Company Number: US-ALVOGEN-2023090136

PATIENT
  Age: 67 Year
  Sex: Female

DRUGS (6)
  1. GABAPENTIN [Suspect]
     Active Substance: GABAPENTIN
     Indication: Suicide attempt
  2. BENZODIAZEPINE [Suspect]
     Active Substance: BENZODIAZEPINE
     Indication: Suicide attempt
  3. METHADONE [Suspect]
     Active Substance: METHADONE HYDROCHLORIDE
     Indication: Suicide attempt
  4. HYDROMORPHONE [Suspect]
     Active Substance: HYDROMORPHONE
     Indication: Suicide attempt
  5. BUPIVACAINE [Suspect]
     Active Substance: BUPIVACAINE
     Indication: Suicide attempt
  6. CLONIDINE [Suspect]
     Active Substance: CLONIDINE
     Indication: Suicide attempt

REACTIONS (1)
  - Completed suicide [Fatal]
